FAERS Safety Report 6132511-5 (Version None)
Quarter: 2009Q1

REPORT INFORMATION
  Report Type: 
  Country: None (occurrence: None)
  Receive Date: 20090324
  Receipt Date: 20090313
  Transmission Date: 20090719
  Serious: Yes (Other)
  Sender: FDA-Public Use
  Company Number: 2009AP001064

PATIENT
  Sex: Female

DRUGS (1)
  1. CLONAZEPAM [Suspect]

REACTIONS (15)
  - AGGRESSION [None]
  - AGITATION [None]
  - DELUSION [None]
  - DRUG HYPERSENSITIVITY [None]
  - EMOTIONAL DISTRESS [None]
  - FLIGHT OF IDEAS [None]
  - HEADACHE [None]
  - MIGRAINE [None]
  - NAUSEA [None]
  - PAIN [None]
  - PRODUCT COUNTERFEIT [None]
  - SLEEP DISORDER [None]
  - SLEEP-RELATED EATING DISORDER [None]
  - SUICIDAL IDEATION [None]
  - WEIGHT INCREASED [None]
